FAERS Safety Report 10304857 (Version 1)
Quarter: 2014Q3

REPORT INFORMATION
  Report Type: Spontaneous
  Country: US (occurrence: None)
  Receive Date: 20140710
  Receipt Date: 20140710
  Transmission Date: 20150326
  Serious: Yes (Other)
  Sender: FDA-Public Use
  Company Number: None

PATIENT
  Age: 24 Year
  Sex: Male
  Weight: 90.72 kg

DRUGS (2)
  1. CIPRO [Suspect]
     Active Substance: CIPROFLOXACIN HYDROCHLORIDE
     Indication: INFECTION
     Dosage: 1
     Route: 048
     Dates: start: 20130723, end: 20130729
  2. CIPRO [Suspect]
     Active Substance: CIPROFLOXACIN HYDROCHLORIDE
     Indication: EPIDIDYMITIS
     Dosage: 1
     Route: 048
     Dates: start: 20130723, end: 20130729

REACTIONS (5)
  - Sleep disorder [None]
  - Deafness [None]
  - Anxiety [None]
  - Tinnitus [None]
  - Activities of daily living impaired [None]

NARRATIVE: CASE EVENT DATE: 20130727
